FAERS Safety Report 7770164-0 (Version None)
Quarter: 2011Q3

REPORT INFORMATION
  Report Type: 
  Country: None (occurrence: None)
  Receive Date: 20110922
  Receipt Date: 20110418
  Transmission Date: 20111222
  Serious: Yes (Other)
  Sender: FDA-Public Use
  Company Number: US-ASTRAZENECA-2007UW25704

PATIENT
  Age: 48 Year
  Sex: Female
  Weight: 68.9 kg

DRUGS (6)
  1. SEROQUEL [Suspect]
     Indication: SLEEP DISORDER
     Route: 048
     Dates: start: 19970101, end: 20070301
  2. ZYPREXA [Concomitant]
     Dates: start: 20060101
  3. METHADONE HCL [Concomitant]
     Indication: PAIN IN EXTREMITY
     Dates: start: 20020101
  4. ABILIFY [Concomitant]
     Dates: start: 20050101
  5. METHADONE HCL [Concomitant]
     Indication: BACK PAIN
     Dates: start: 20020101
  6. SEROQUEL [Suspect]
     Indication: BIPOLAR DISORDER
     Route: 048
     Dates: start: 19970101, end: 20070301

REACTIONS (4)
  - PANCREATITIS [None]
  - SCOLIOSIS [None]
  - INJURY [None]
  - MYELOPATHY [None]
